FAERS Safety Report 5319018-X (Version None)
Quarter: 2007Q2

REPORT INFORMATION
  Report Type: 
  Country: None (occurrence: None)
  Receive Date: 20070508
  Receipt Date: 20070424
  Transmission Date: 20071010
  Serious: Yes (Hospitalization)
  Sender: FDA-Public Use
  Company Number: PHBS2007US07273

PATIENT
  Age: 35 Year
  Sex: Female

DRUGS (17)
  1. OXCARBAZEPINE [Suspect]
     Indication: BIPOLAR II DISORDER
     Dosage: 600 MG/DAY
     Route: 065
  2. OXCARBAZEPINE [Suspect]
     Dosage: UNK
  3. TOPIRAMATE [Suspect]
     Dosage: 350 MG/DAY
     Route: 065
  4. TOPIRAMATE [Suspect]
     Dosage: 300 MG/DAY
     Route: 065
  5. FLUOXETINE [Suspect]
     Dosage: 60 MG/DAY
     Route: 065
  6. ARIPIPRAZOLE [Suspect]
     Dosage: 15 MG/DAY
     Route: 065
  7. QUETIAPINE FUMARATE [Suspect]
     Dosage: 200 MG/DAY
     Route: 065
  8. LITHIUM CARBONATE [Suspect]
     Dosage: 900 MG/DAY
     Route: 065
  9. NAPROXEN [Suspect]
     Dosage: 1000 MG/DAY
     Route: 065
  10. PANTOPRAZOLE [Suspect]
     Dosage: 40 MG/DAY
     Route: 065
  11. AMOXICILLIN [Suspect]
     Dosage: 1500 MG/DAY
     Route: 065
  12. LEVOTHYROXINE SODIUM [Suspect]
     Dosage: 50 MCG/DAY
     Route: 065
  13. LEVOTHYROXINE SODIUM [Suspect]
     Dosage: 75 MCG/DAY
     Route: 065
  14. LAMOTRIGINE [Suspect]
     Dosage: 50 MG/DAY
     Route: 065
  15. LAMOTRIGINE [Suspect]
     Dosage: 200 MG/DAY
     Route: 065
  16. ESCITALOPRAM OXALATE [Concomitant]
     Dosage: 20 MG/DAY
     Route: 065
  17. HYDROXYZINE [Concomitant]
     Dosage: 50 MG/DAY
     Route: 065

REACTIONS (8)
  - DEPRESSED MOOD [None]
  - DYSPHAGIA [None]
  - GLOSSODYNIA [None]
  - HALLUCINATION, AUDITORY [None]
  - MOUTH ULCERATION [None]
  - PHARYNGOLARYNGEAL PAIN [None]
  - PSYCHOTIC DISORDER [None]
  - SUICIDAL IDEATION [None]
